FAERS Safety Report 22184816 (Version 12)
Quarter: 2023Q2

REPORT INFORMATION
  Report Type: Spontaneous
  Country: US (occurrence: US)
  Receive Date: 20230407
  Receipt Date: 20230617
  Transmission Date: 20230722
  Serious: Yes (Hospitalization, Other)
  Sender: FDA-Public Use
  Company Number: US-UNITED THERAPEUTICS-UNT-2023-009624

PATIENT
  Age: 45 Year
  Sex: Female
  Weight: 62.132 kg

DRUGS (10)
  1. REMODULIN [Suspect]
     Active Substance: TREPROSTINIL
     Indication: Pulmonary arterial hypertension
     Dosage: 0.0998 ?G/KG, CONTINUING
     Route: 058
  2. REMODULIN [Suspect]
     Active Substance: TREPROSTINIL
     Dosage: 0.106 ?G/KG, CONTINUING
     Route: 058
  3. REMODULIN [Suspect]
     Active Substance: TREPROSTINIL
     Dosage: 0.143 ?G/KG, CONTINUING
     Route: 058
  4. REMODULIN [Suspect]
     Active Substance: TREPROSTINIL
     Dosage: 0.103 ?G/KG, CONTINUING
     Route: 058
  5. REMODULIN [Suspect]
     Active Substance: TREPROSTINIL
     Dosage: UNK, CONTINUING
     Route: 058
     Dates: start: 202103
  6. REMODULIN [Suspect]
     Active Substance: TREPROSTINIL
     Indication: Pulmonary arterial hypertension
     Dosage: 0.103 ?G/KG (SELF FILL CASSETTE WITH 3 ML. RATE OF 40 MCL PER HOUR), CONTINUING
     Route: 058
  7. REMODULIN [Suspect]
     Active Substance: TREPROSTINIL
     Dosage: UNK, CONTINUING
     Route: 058
     Dates: start: 20220916
  8. TADALAFIL [Suspect]
     Active Substance: TADALAFIL
     Indication: Product used for unknown indication
     Dosage: UNK
     Route: 065
     Dates: end: 202304
  9. TADALAFIL [Suspect]
     Active Substance: TADALAFIL
     Dosage: UNK
     Route: 065
     Dates: end: 202305
  10. XARELTO [Concomitant]
     Active Substance: RIVAROXABAN
     Indication: Product used for unknown indication
     Dosage: UNK
     Route: 065

REACTIONS (35)
  - Pneumonia [Unknown]
  - Infusion site reaction [Unknown]
  - Nasopharyngitis [Unknown]
  - Cough [Unknown]
  - Viral infection [Unknown]
  - Weight decreased [Unknown]
  - Discomfort [Unknown]
  - Infusion site pain [Unknown]
  - Flatulence [Unknown]
  - Nausea [Unknown]
  - Vomiting [Unknown]
  - Abdominal discomfort [Unknown]
  - Infusion site induration [Unknown]
  - Scar [Unknown]
  - Incorrect dose administered [Unknown]
  - Infusion site erythema [Unknown]
  - Intentional dose omission [Unknown]
  - Dyspnoea [Unknown]
  - Palpitations [Unknown]
  - Infusion site discomfort [Unknown]
  - Musculoskeletal chest pain [Unknown]
  - Hyperhidrosis [Unknown]
  - Chest discomfort [Unknown]
  - Peripheral swelling [Unknown]
  - Malaise [Unknown]
  - Dizziness [Unknown]
  - Device infusion issue [Recovered/Resolved]
  - Device maintenance issue [Unknown]
  - Device dislocation [Unknown]
  - Device placement issue [Unknown]
  - Device malfunction [Unknown]
  - Device malfunction [Unknown]
  - Unevaluable device issue [Unknown]
  - Secretion discharge [Unknown]
  - Skin laceration [Unknown]

NARRATIVE: CASE EVENT DATE: 20230331
